FAERS Safety Report 4801564-6 (Version None)
Quarter: 2005Q4

REPORT INFORMATION
  Report Type: 
  Country: None (occurrence: None)
  Receive Date: 20051011
  Receipt Date: 20051011
  Transmission Date: 20060501
  Serious: Yes (Other)
  Sender: FDA-Public Use
  Company Number: None

PATIENT
  Age: 59 Year
  Sex: Female
  Weight: 75.7507 kg

DRUGS (1)
  1. FENTANYL [Suspect]
     Indication: BACK PAIN
     Dosage: TRANSDERMAL Q 3 DAYS
     Route: 062
     Dates: start: 20050901

REACTIONS (2)
  - DRUG EFFECT DECREASED [None]
  - PHARMACEUTICAL PRODUCT COMPLAINT [None]
